FAERS Safety Report 5478075-0 (Version None)
Quarter: 2007Q4

REPORT INFORMATION
  Report Type: 
  Country: None (occurrence: None)
  Receive Date: 20071005
  Receipt Date: 20070928
  Transmission Date: 20080405
  Serious: Yes (Other)
  Sender: FDA-Public Use
  Company Number: JP-NOVOPROD-268056

PATIENT
  Age: 17 Year
  Sex: Male
  Weight: 48 kg

DRUGS (1)
  1. NORDITROPIN [Suspect]
     Indication: GROWTH HORMONE DEFICIENCY
     Route: 058
     Dates: start: 20040917, end: 20060506

REACTIONS (2)
  - EXOPHTHALMOS [None]
  - HYPERTHYROIDISM [None]
